FAERS Safety Report 12084044 (Version 1)
Quarter: 2016Q1

REPORT INFORMATION
  Report Type: Spontaneous
  Country: DE (occurrence: DE)
  Receive Date: 20160217
  Receipt Date: 20160217
  Transmission Date: 20160526
  Serious: Yes (Death, Other)
  Sender: FDA-Public Use
  Company Number: DE-ALEXION PHARMACEUTICALS INC-A201600958

PATIENT
  Age: 2 Year
  Sex: Female
  Weight: 13 kg

DRUGS (8)
  1. SOLIRIS [Suspect]
     Active Substance: ECULIZUMAB
     Indication: HAEMOLYTIC URAEMIC SYNDROME
     Dosage: 600 MG, SINGLE
     Route: 042
     Dates: start: 20160203, end: 20160207
  2. GENTAMICIN. [Concomitant]
     Active Substance: GENTAMICIN
     Indication: SEPSIS
     Dosage: 30 MG, QD
     Route: 042
     Dates: start: 20160204
  3. SUFENTANIL [Concomitant]
     Active Substance: SUFENTANIL
     Indication: MECHANICAL VENTILATION
     Dosage: UNK, PRN DOSE AS REQUIRED
     Route: 042
     Dates: start: 20160204
  4. MIDAZOLAM                          /00634102/ [Concomitant]
     Active Substance: MIDAZOLAM\MIDAZOLAM HYDROCHLORIDE
     Indication: MECHANICAL VENTILATION
     Dosage: UNK, PRN
     Route: 042
     Dates: start: 20160204
  5. PHENOBARBITAL. [Concomitant]
     Active Substance: PHENOBARBITAL
     Dosage: 30 MG, BID ON DAY 2
     Route: 042
     Dates: start: 201602
  6. PHENOBARBITAL. [Concomitant]
     Active Substance: PHENOBARBITAL
     Indication: SEIZURE
     Dosage: 100 MG, BID ON DAY 1
     Route: 042
     Dates: start: 20160204
  7. AMPICILLIN [Concomitant]
     Active Substance: AMPICILLIN
     Indication: INFECTION PROPHYLAXIS
     Dosage: 500 MG, BID X DOSE 2
     Route: 042
     Dates: start: 20160202, end: 20160203
  8. CEFOTAXIME [Concomitant]
     Active Substance: CEFOTAXIME SODIUM
     Indication: ESCHERICHIA SEPSIS
     Dosage: 500 MG, BID
     Route: 042
     Dates: start: 20160203

REACTIONS (5)
  - Cardiac failure [Fatal]
  - Multiple organ dysfunction syndrome [Fatal]
  - Condition aggravated [Fatal]
  - Cerebral ventricle collapse [Unknown]
  - Brain oedema [Fatal]

NARRATIVE: CASE EVENT DATE: 20160203
